FAERS Safety Report 14240971 (Version 7)
Quarter: 2018Q2

REPORT INFORMATION
  Report Type: Spontaneous
  Country: US (occurrence: US)
  Receive Date: 20171130
  Receipt Date: 20180626
  Transmission Date: 20180711
  Serious: Yes (Hospitalization)
  Sender: FDA-Public Use
  Company Number: US-ACTELION-A-US2017-163265

PATIENT
  Age: 19 Year
  Sex: Female
  Weight: 54.42 kg

DRUGS (4)
  1. ADCIRCA [Concomitant]
     Active Substance: TADALAFIL
  2. LETAIRIS [Concomitant]
     Active Substance: AMBRISENTAN
  3. VELETRI [Suspect]
     Active Substance: EPOPROSTENOL
     Indication: PULMONARY ARTERIAL HYPERTENSION
     Dosage: 68 NG/KG, PER MIN
     Route: 042
     Dates: start: 20170201
  4. COUMADIN [Concomitant]
     Active Substance: WARFARIN SODIUM

REACTIONS (7)
  - Respiratory tract infection [Unknown]
  - Hospitalisation [Unknown]
  - Dyspnoea [Unknown]
  - Abdominal distension [Unknown]
  - Haemoptysis [Unknown]
  - Pain in jaw [Not Recovered/Not Resolved]
  - Cough [Unknown]

NARRATIVE: CASE EVENT DATE: 20170201
